FAERS Safety Report 4602059-5 (Version None)
Quarter: 2005Q1

REPORT INFORMATION
  Report Type: 
  Country: None (occurrence: None)
  Receive Date: 20050131
  Receipt Date: 20041116
  Transmission Date: 20050727
  Serious: No
  Sender: FDA-Public Use
  Company Number: 200418828US

PATIENT
  Age: 70 Year
  Sex: Female

DRUGS (1)
  1. KETEK [Suspect]
     Indication: LUNG INFECTION
     Dosage: 400 MG 2 TABLETS MG QD
     Dates: start: 20041107, end: 20041109

REACTIONS (9)
  - ARTHRALGIA [None]
  - BACK PAIN [None]
  - DIZZINESS [None]
  - FLATULENCE [None]
  - MUSCLE SPASMS [None]
  - NAUSEA [None]
  - NERVOUSNESS [None]
  - PARAESTHESIA [None]
  - VOMITING [None]
